FAERS Safety Report 9928585 (Version 1)
Quarter: 2014Q1

REPORT INFORMATION
  Report Type: Spontaneous
  Country: CN (occurrence: None)
  Receive Date: 20140225
  Receipt Date: 20140225
  Transmission Date: 20141002
  Serious: Yes (Other)
  Sender: FDA-Public Use
  Company Number: SYM-2014-17556

PATIENT
  Sex: 0

DRUGS (7)
  1. FLUOROURACIL (FLUOROURACIL) (INFUSION) (FLUOROURACIL) [Suspect]
     Indication: LIP AND/OR ORAL CAVITY CANCER
     Route: 042
  2. CISPLATIN [Suspect]
     Indication: LIP AND/OR ORAL CAVITY CANCER
  3. DOCETAXEL [Suspect]
     Indication: LIP AND/OR ORAL CAVITY CANCER
  4. NIMOTUZUMAB [Suspect]
     Indication: LIP AND/OR ORAL CAVITY CANCER
     Route: 042
  5. DEXAMETHASONE (DEXAMETHASONE) (DEXAMETHASONE) [Concomitant]
  6. AZASETRON HYDROCHLORIDE (AZASETRON HYDROCHLORIDE) (AZASETRON HYDROCHLORIDE) [Concomitant]
  7. SODIUM CHLORIDE (SODIUM CHLORIDE) (SODIUM CHLORIDE) [Concomitant]

REACTIONS (2)
  - Hepatic function abnormal [None]
  - White blood cell count decreased [None]
